FAERS Safety Report 5878727-4 (Version None)
Quarter: 2008Q3

REPORT INFORMATION
  Report Type: 
  Country: None (occurrence: None)
  Receive Date: 20080912
  Receipt Date: 20080903
  Transmission Date: 20090109
  Serious: Yes (Hospitalization)
  Sender: FDA-Public Use
  Company Number: US-BAYER-200832527NA

PATIENT
  Age: 81 Year
  Sex: Female

DRUGS (15)
  1. NEXAVAR [Suspect]
     Indication: HEPATIC NEOPLASM MALIGNANT
     Dosage: TOTAL DAILY DOSE: 400 MG  UNIT DOSE: 200 MG
     Route: 048
     Dates: start: 20080628
  2. BENICAR [Concomitant]
  3. MULTI-VITAMIN [Concomitant]
  4. PROTONIX [Concomitant]
  5. TRUSOPT [Concomitant]
  6. COLACE [Concomitant]
  7. MAXOXIDE [Concomitant]
  8. ULTRAM [Concomitant]
  9. MEGACE [Concomitant]
  10. FERROUS SULFATE TAB [Concomitant]
  11. ATENOLOL [Concomitant]
  12. ALPHAGAN DROPS [Concomitant]
  13. EPOGEN [Concomitant]
     Indication: ANAEMIA
  14. ARANESP [Concomitant]
     Indication: ANAEMIA
     Dates: start: 20080711, end: 20080711
  15. ARANESP [Concomitant]
     Dates: start: 20080725, end: 20080725

REACTIONS (2)
  - HOSPITALISATION [None]
  - PLATELET COUNT DECREASED [None]
